FAERS Safety Report 6127974-5 (Version None)
Quarter: 2009Q1

REPORT INFORMATION
  Report Type: 
  Country: None (occurrence: None)
  Receive Date: 20090323
  Receipt Date: 20090310
  Transmission Date: 20090719
  Serious: Yes (Other)
  Sender: FDA-Public Use
  Company Number: US-PFIZER INC-2009181898

PATIENT
  Sex: Female

DRUGS (6)
  1. PROVERA [Suspect]
  2. PREMARIN [Suspect]
  3. PREMPRO [Suspect]
     Dosage: UNK
     Dates: start: 19970401, end: 20020901
  4. ACTIVELLA [Suspect]
  5. ESTROGENIC SUBSTANCE [Suspect]
  6. MEDROXYPROGESTERONE ACETATE [Suspect]

REACTIONS (1)
  - BREAST CANCER FEMALE [None]
